FAERS Safety Report 18273356 (Version 1)
Quarter: 2020Q3

REPORT INFORMATION
  Report Type: Spontaneous
  Country: US (occurrence: US)
  Receive Date: 20200916
  Receipt Date: 20200916
  Transmission Date: 20201103
  Serious: No
  Sender: FDA-Public Use
  Company Number: US-THERAPEUTICSMD-2020TMD03211

PATIENT
  Age: 65 Year
  Sex: Female

DRUGS (2)
  1. IMVEXXY [Suspect]
     Active Substance: ESTRADIOL
     Dosage: UNK, 2X/WEEK
     Dates: start: 201901
  2. IMVEXXY [Suspect]
     Active Substance: ESTRADIOL
     Dosage: UNK, 1X/WEEK
     Dates: start: 2020

REACTIONS (6)
  - Limb discomfort [Recovered/Resolved]
  - Off label use [Not Recovered/Not Resolved]
  - Intentional product misuse [Not Recovered/Not Resolved]
  - Pain in jaw [Recovered/Resolved]
  - Sensory disturbance [Unknown]
  - Unevaluable event [Unknown]

NARRATIVE: CASE EVENT DATE: 2019
